FAERS Safety Report 6276443-0 (Version None)
Quarter: 2009Q3

REPORT INFORMATION
  Report Type: 
  Country: None (occurrence: None)
  Receive Date: 20090717
  Receipt Date: 20090717
  Transmission Date: 20100115
  Serious: Yes (Hospitalization)
  Sender: FDA-Public Use
  Company Number: None

PATIENT
  Age: 67 Year
  Weight: 87.9978 kg

DRUGS (2)
  1. SORAFENIB [Suspect]
     Indication: METASTASES TO CENTRAL NERVOUS SYSTEM
     Dosage: 400 MG BID
     Dates: start: 20090510, end: 20090521
  2. TEMOZOLOMIDE [Suspect]
     Dosage: 75 MG BID
     Dates: start: 20090510

REACTIONS (5)
  - BLOOD ALKALINE PHOSPHATASE ABNORMAL [None]
  - BLOOD BILIRUBIN ABNORMAL [None]
  - BLOOD POTASSIUM ABNORMAL [None]
  - BLOOD SODIUM ABNORMAL [None]
  - RASH [None]
